FAERS Safety Report 25412442 (Version 1)
Quarter: 2025Q2

REPORT INFORMATION
  Report Type: Spontaneous
  Country: US (occurrence: US)
  Receive Date: 20250609
  Receipt Date: 20250609
  Transmission Date: 20250716
  Serious: No
  Sender: INNOGENIX, LLC
  Company Number: US-Innogenix, LLC-2178340

PATIENT

DRUGS (2)
  1. BACLOFEN [Suspect]
     Active Substance: BACLOFEN
     Indication: Secondary progressive multiple sclerosis
  2. TRAMADOL [Suspect]
     Active Substance: TRAMADOL

REACTIONS (2)
  - Insomnia [Unknown]
  - Drug ineffective [Unknown]
